FAERS Safety Report 12586315 (Version 1)
Quarter: 2016Q3

REPORT INFORMATION
  Report Type: Spontaneous
  Country: US (occurrence: None)
  Receive Date: 20160722
  Receipt Date: 20160722
  Transmission Date: 20161109
  Serious: Yes (Hospitalization)
  Sender: FDA-Public Use
  Company Number: None

PATIENT
  Age: 3 Month
  Sex: Male
  Weight: 3.86 kg

DRUGS (2)
  1. SUBUTEX IN-UTERO [Concomitant]
  2. GABAPENTIN. [Suspect]
     Active Substance: GABAPENTIN
     Indication: PRODUCT USED FOR UNKNOWN INDICATION
     Dosage: IN-UTERO EXPOSURE
     Dates: start: 20150731, end: 20160419

REACTIONS (4)
  - Failure to thrive [None]
  - Pyloric stenosis [None]
  - Maternal drugs affecting foetus [None]
  - Maternal exposure during pregnancy [None]

NARRATIVE: CASE EVENT DATE: 20160719
